FAERS Safety Report 6764394-4 (Version None)
Quarter: 2010Q2

REPORT INFORMATION
  Report Type: 
  Country: None (occurrence: None)
  Receive Date: 20100610
  Receipt Date: 20100607
  Transmission Date: 20101027
  Serious: Yes (Hospitalization, Other)
  Sender: FDA-Public Use
  Company Number: IT-BRISTOL-MYERS SQUIBB COMPANY-15138019

PATIENT
  Age: 84 Year
  Sex: Female

DRUGS (1)
  1. COUMADIN [Suspect]
     Indication: ATRIAL FIBRILLATION
     Dosage: FROM 21OCT2003 TO 25MAY2010;INTERRUPTED ON 25MAY2010.
     Route: 048
     Dates: start: 20031021

REACTIONS (6)
  - ASTHENIA [None]
  - COUGH [None]
  - DYSPNOEA [None]
  - DYSSTASIA [None]
  - HYPERSOMNIA [None]
  - INTERNATIONAL NORMALISED RATIO INCREASED [None]
